FAERS Safety Report 5909545-6 (Version None)
Quarter: 2008Q4

REPORT INFORMATION
  Report Type: 
  Country: None (occurrence: None)
  Receive Date: 20081002
  Receipt Date: 20080929
  Transmission Date: 20090506
  Serious: Yes (Other)
  Sender: FDA-Public Use
  Company Number: SP02057

PATIENT
  Age: 85 Year
  Sex: Female

DRUGS (12)
  1. VISICOL [Suspect]
     Indication: BOWEL PREPARATION
     Dosage: 50 GM, ORAL
     Route: 048
     Dates: start: 20080916, end: 20080916
  2. VISICOL [Suspect]
     Indication: COLONOSCOPY
     Dosage: 50 GM, ORAL
     Route: 048
     Dates: start: 20080916, end: 20080916
  3. CANDESARTAN CILEXETIL [Suspect]
  4. SPIRONOLACTONE [Suspect]
  5. LANSOPRAZOLE [Concomitant]
  6. ECABET [Concomitant]
  7. FLURBIPROFEN [Concomitant]
  8. ETODOLAC [Concomitant]
  9. IRSOGLADINE MALEATE [Concomitant]
  10. ASPIRIN [Concomitant]
  11. PRAVASTATIN [Concomitant]
  12. ZOPICLONE [Concomitant]

REACTIONS (6)
  - BLOOD CALCIUM DECREASED [None]
  - BLOOD PRESSURE DECREASED [None]
  - HYPOAESTHESIA [None]
  - MALAISE [None]
  - POST PROCEDURAL COMPLICATION [None]
  - RENAL FAILURE ACUTE [None]
